FAERS Safety Report 8970063 (Version 1)
Quarter: 2012Q4

REPORT INFORMATION
  Report Type: 
  Country: US (occurrence: US)
  Receive Date: 20121217
  Receipt Date: 20121217
  Transmission Date: 20130627
  Serious: Yes (Other)
  Sender: FDA-Public Use
  Company Number: US-PFIZER INC-2012315854

PATIENT
  Sex: Female

DRUGS (3)
  1. NEURONTIN [Suspect]
     Indication: SEIZURES
     Dosage: UNK
     Route: 048
  2. NEURONTIN [Suspect]
     Dosage: 900mg in the morning 600mg in the afternoon and 1200mg at night
     Route: 048
  3. KEPPRA [Concomitant]
     Dosage: UNK

REACTIONS (1)
  - Pancreatitis [Unknown]
